FAERS Safety Report 17019806 (Version 1)
Quarter: 2019Q4

REPORT INFORMATION
  Report Type: Spontaneous
  Country: US (occurrence: US)
  Receive Date: 20191112
  Receipt Date: 20191112
  Transmission Date: 20200122
  Serious: No
  Sender: FDA-Public Use
  Company Number: US-BTG-201900096

PATIENT
  Age: 79 Year
  Sex: Female

DRUGS (4)
  1. CROFAB [Suspect]
     Active Substance: CROTALIDAE POLYVALENT IMMUNE FAB (OVINE)
     Indication: SNAKE BITE
     Dosage: ADDITIONAL 6 VIALS OF CROFAB AT 21:00 (INITIAL CONTROL/LOADING DOSE)
     Route: 065
     Dates: start: 20190528
  2. CROFAB [Suspect]
     Active Substance: CROTALIDAE POLYVALENT IMMUNE FAB (OVINE)
     Indication: SNAKE BITE
     Dosage: 2 VIALS (MAINTENANCE DOSE)
     Route: 065
     Dates: start: 20190529
  3. CROFAB [Suspect]
     Active Substance: CROTALIDAE POLYVALENT IMMUNE FAB (OVINE)
     Indication: SNAKE BITE
     Dosage: 6 VIALS OF CROFAB AT 18:36 (INITIAL CONTROL/LOADING DOSE)
     Route: 065
     Dates: start: 20190528
  4. CROFAB [Suspect]
     Active Substance: CROTALIDAE POLYVALENT IMMUNE FAB (OVINE)
     Indication: SNAKE BITE
     Dosage: 2 VIALS (WILL HAVE RECEIVED 12 VIALS IN TOTAL) (MAINTENANCE DOSE)
     Route: 065
     Dates: start: 20190529

REACTIONS (2)
  - Peripheral swelling [Unknown]
  - Pain [Unknown]

NARRATIVE: CASE EVENT DATE: 20190529
